FAERS Safety Report 14749846 (Version 1)
Quarter: 2018Q2

REPORT INFORMATION
  Report Type: Spontaneous
  Country: US (occurrence: US)
  Receive Date: 20180412
  Receipt Date: 20180412
  Transmission Date: 20180711
  Serious: Yes (Hospitalization, Other)
  Sender: FDA-Public Use
  Company Number: US-ALEMBIC PHARMACUETICALS LIMITED-2018SCAL000254

PATIENT

DRUGS (1)
  1. LITHIUM CARBONATE. [Suspect]
     Active Substance: LITHIUM CARBONATE
     Indication: BIPOLAR DISORDER
     Dosage: UNK
     Route: 065

REACTIONS (8)
  - Skull fracture [Unknown]
  - Hyperparathyroidism [Unknown]
  - Renal failure [Unknown]
  - Nephrogenic diabetes insipidus [Unknown]
  - Tubulointerstitial nephritis [Unknown]
  - Spinal fracture [Unknown]
  - Renal cyst [Unknown]
  - Fall [Unknown]
